FAERS Safety Report 8956623 (Version 1)
Quarter: 2012Q4

REPORT INFORMATION
  Report Type: 
  Country: US (occurrence: US)
  Receive Date: 20121210
  Receipt Date: 20121210
  Transmission Date: 20130627
  Serious: Yes (Hospitalization)
  Sender: FDA-Public Use
  Company Number: US-SHIRE-ALL1-2012-06103

PATIENT
  Age: 49 Year
  Sex: Male
  Weight: 81.18 kg

DRUGS (4)
  1. PENTASA [Suspect]
     Indication: COLITIS ULCERATIVE
     Dosage: 1 g, 2x/day:bid
     Route: 048
     Dates: start: 201110, end: 2012
  2. PENTASA [Suspect]
     Dosage: 1 g, Other (4 times daily)
     Route: 048
     Dates: end: 201110
  3. METHOTREXATE [Concomitant]
     Indication: RHEUMATOID ARTHRITIS
     Dosage: 20 mg, 1x/week
     Route: 065
  4. CIMZIA [Concomitant]
     Indication: PRODUCT USED FOR UNKNOWN INDICATION
     Dosage: 200 mg, 1x/2wks
     Route: 058

REACTIONS (1)
  - Intestinal obstruction [Recovered/Resolved]
